FAERS Safety Report 7699740-0 (Version None)
Quarter: 2011Q3

REPORT INFORMATION
  Report Type: 
  Country: None (occurrence: None)
  Receive Date: 20110822
  Receipt Date: 20110811
  Transmission Date: 20111222
  Serious: No
  Sender: FDA-Public Use
  Company Number: US-BIOGENIDEC-2011BI030693

PATIENT
  Age: 29 Year
  Sex: Female

DRUGS (2)
  1. TYSABRI [Suspect]
     Indication: MULTIPLE SCLEROSIS
     Route: 042
     Dates: start: 20110429
  2. TYSABRI [Suspect]
     Route: 042
     Dates: start: 20080812, end: 20100730

REACTIONS (4)
  - PARAESTHESIA [None]
  - MUSCLE SPASMS [None]
  - HYPOAESTHESIA [None]
  - GAIT DISTURBANCE [None]
